FAERS Safety Report 8381840-3 (Version None)
Quarter: 2012Q2

REPORT INFORMATION
  Report Type: 
  Country: None (occurrence: None)
  Receive Date: 20120522
  Receipt Date: 20120522
  Transmission Date: 20120825
  Serious: Yes (Hospitalization)
  Sender: FDA-Public Use
  Company Number: None

PATIENT
  Sex: Female

DRUGS (3)
  1. PEGASYS [Suspect]
     Indication: HEPATITIS C
     Dosage: 180 MCG QWEEJ SQ
     Route: 058
  2. RIBAVIRIN [Concomitant]
  3. INCIVEK [Suspect]
     Indication: HEPATITIS C
     Dosage: 750 MG TID PO
     Route: 048

REACTIONS (1)
  - URINARY BLADDER HAEMORRHAGE [None]
